FAERS Safety Report 16737967 (Version 1)
Quarter: 2019Q3

REPORT INFORMATION
  Report Type: Report from Study
  Country: None (occurrence: US)
  Receive Date: 20190824
  Receipt Date: 20190824
  Transmission Date: 20191005
  Serious: Yes (Hospitalization, Other)
  Sender: FDA-Public Use
  Company Number: US-ABBVIE-19K-163-2899163-00

PATIENT
  Age: 58 Year
  Sex: Male
  Weight: 64.47 kg

DRUGS (2)
  1. CREON [Suspect]
     Active Substance: PANCRELIPASE AMYLASE\PANCRELIPASE LIPASE\PANCRELIPASE PROTEASE
     Indication: PANCREATIC FAILURE
     Dosage: 6000 UNIT CAPSULE WITH EACH MEAL
     Route: 048
     Dates: start: 201802
  2. CREON [Suspect]
     Active Substance: PANCRELIPASE AMYLASE\PANCRELIPASE LIPASE\PANCRELIPASE PROTEASE
     Dosage: 6000 UNIT CAPSULE WITH EACH MEAL
     Route: 048

REACTIONS (10)
  - Diabetic ketoacidosis [Recovered/Resolved]
  - Abdominal pain [Unknown]
  - Abdominal distension [Not Recovered/Not Resolved]
  - Gastric stenosis [Unknown]
  - Weight decreased [Unknown]
  - Vomiting [Unknown]
  - Pancreatitis [Not Recovered/Not Resolved]
  - Impaired gastric emptying [Unknown]
  - Intentional product misuse [Unknown]
  - Decreased appetite [Unknown]

NARRATIVE: CASE EVENT DATE: 2018
